FAERS Safety Report 25811816 (Version 3)
Quarter: 2025Q4

REPORT INFORMATION
  Report Type: Report from Study
  Country: EU (occurrence: EU)
  Receive Date: 20250917
  Receipt Date: 20251103
  Transmission Date: 20260117
  Serious: Yes (Hospitalization, Other)
  Sender: MYLAN
  Company Number: EU-SA-2025SA005492

PATIENT
  Age: 76 Year
  Sex: Female
  Weight: 57 kg

DRUGS (56)
  1. NITROGLYCERIN [Suspect]
     Active Substance: NITROGLYCERIN
     Indication: Cardiac disorder
     Dosage: UNK, QD
     Dates: start: 202503
  2. NITROGLYCERIN [Suspect]
     Active Substance: NITROGLYCERIN
     Dosage: UNK, QD
     Route: 065
     Dates: start: 202503
  3. NITROGLYCERIN [Suspect]
     Active Substance: NITROGLYCERIN
     Dosage: UNK, QD
     Route: 065
     Dates: start: 202503
  4. NITROGLYCERIN [Suspect]
     Active Substance: NITROGLYCERIN
     Dosage: UNK, QD
     Dates: start: 202503
  5. INSULIN GLARGINE [Suspect]
     Active Substance: INSULIN GLARGINE
     Indication: Type 2 diabetes mellitus
     Dosage: 24 INTERNATIONAL UNIT, QD
     Route: 058
     Dates: start: 20240417, end: 202501
  6. INSULIN GLARGINE [Suspect]
     Active Substance: INSULIN GLARGINE
     Dosage: 24 INTERNATIONAL UNIT, QD
     Dates: start: 20240417, end: 202501
  7. INSULIN GLARGINE [Suspect]
     Active Substance: INSULIN GLARGINE
     Dosage: 24 INTERNATIONAL UNIT, QD
     Dates: start: 20240417, end: 202501
  8. INSULIN GLARGINE [Suspect]
     Active Substance: INSULIN GLARGINE
     Dosage: 24 INTERNATIONAL UNIT, QD
     Route: 058
     Dates: start: 20240417, end: 202501
  9. INSULIN GLARGINE [Suspect]
     Active Substance: INSULIN GLARGINE
     Dosage: 16 INTERNATIONAL UNIT, QD
     Dates: start: 202501, end: 2025
  10. INSULIN GLARGINE [Suspect]
     Active Substance: INSULIN GLARGINE
     Dosage: 16 INTERNATIONAL UNIT, QD
     Dates: start: 202501, end: 2025
  11. INSULIN GLARGINE [Suspect]
     Active Substance: INSULIN GLARGINE
     Dosage: 16 INTERNATIONAL UNIT, QD
     Route: 058
     Dates: start: 202501, end: 2025
  12. INSULIN GLARGINE [Suspect]
     Active Substance: INSULIN GLARGINE
     Dosage: 16 INTERNATIONAL UNIT, QD
     Route: 058
     Dates: start: 202501, end: 2025
  13. INSULIN GLARGINE [Suspect]
     Active Substance: INSULIN GLARGINE
     Dosage: 26 INTERNATIONAL UNIT, QD
     Route: 058
     Dates: start: 2025, end: 202507
  14. INSULIN GLARGINE [Suspect]
     Active Substance: INSULIN GLARGINE
     Dosage: 26 INTERNATIONAL UNIT, QD
     Dates: start: 2025, end: 202507
  15. INSULIN GLARGINE [Suspect]
     Active Substance: INSULIN GLARGINE
     Dosage: 26 INTERNATIONAL UNIT, QD
     Dates: start: 2025, end: 202507
  16. INSULIN GLARGINE [Suspect]
     Active Substance: INSULIN GLARGINE
     Dosage: 26 INTERNATIONAL UNIT, QD
     Route: 058
     Dates: start: 2025, end: 202507
  17. INSULIN GLARGINE [Suspect]
     Active Substance: INSULIN GLARGINE
     Dosage: 28 INTERNATIONAL UNIT, QD
     Dates: start: 202507, end: 2025
  18. INSULIN GLARGINE [Suspect]
     Active Substance: INSULIN GLARGINE
     Dosage: 28 INTERNATIONAL UNIT, QD
     Dates: start: 202507, end: 2025
  19. INSULIN GLARGINE [Suspect]
     Active Substance: INSULIN GLARGINE
     Dosage: 28 INTERNATIONAL UNIT, QD
     Route: 058
     Dates: start: 202507, end: 2025
  20. INSULIN GLARGINE [Suspect]
     Active Substance: INSULIN GLARGINE
     Dosage: 28 INTERNATIONAL UNIT, QD
     Route: 058
     Dates: start: 202507, end: 2025
  21. INSULIN GLARGINE [Suspect]
     Active Substance: INSULIN GLARGINE
     Dosage: 30 INTERNATIONAL UNIT, QD
     Dates: start: 20250715, end: 20250716
  22. INSULIN GLARGINE [Suspect]
     Active Substance: INSULIN GLARGINE
     Dosage: 30 INTERNATIONAL UNIT, QD
     Dates: start: 20250715, end: 20250716
  23. INSULIN GLARGINE [Suspect]
     Active Substance: INSULIN GLARGINE
     Dosage: 30 INTERNATIONAL UNIT, QD
     Route: 058
     Dates: start: 20250715, end: 20250716
  24. INSULIN GLARGINE [Suspect]
     Active Substance: INSULIN GLARGINE
     Dosage: 30 INTERNATIONAL UNIT, QD
     Route: 058
     Dates: start: 20250715, end: 20250716
  25. INSULIN GLARGINE [Suspect]
     Active Substance: INSULIN GLARGINE
     Dosage: 28 INTERNATIONAL UNIT, QD
     Dates: start: 202507
  26. INSULIN GLARGINE [Suspect]
     Active Substance: INSULIN GLARGINE
     Dosage: 28 INTERNATIONAL UNIT, QD
     Route: 058
     Dates: start: 202507
  27. INSULIN GLARGINE [Suspect]
     Active Substance: INSULIN GLARGINE
     Dosage: 28 INTERNATIONAL UNIT, QD
     Dates: start: 202507
  28. INSULIN GLARGINE [Suspect]
     Active Substance: INSULIN GLARGINE
     Dosage: 28 INTERNATIONAL UNIT, QD
     Route: 058
     Dates: start: 202507
  29. INSULIN HUMAN [Suspect]
     Active Substance: INSULIN HUMAN
     Indication: Type 2 diabetes mellitus
     Dosage: UNK
  30. INSULIN HUMAN [Suspect]
     Active Substance: INSULIN HUMAN
     Dosage: UNK
     Route: 065
  31. INSULIN HUMAN [Suspect]
     Active Substance: INSULIN HUMAN
     Dosage: UNK
     Route: 065
  32. INSULIN HUMAN [Suspect]
     Active Substance: INSULIN HUMAN
     Dosage: UNK
  33. PYLERA [Suspect]
     Active Substance: BISMUTH SUBCITRATE POTASSIUM\METRONIDAZOLE\TETRACYCLINE HYDROCHLORIDE
     Indication: Product used for unknown indication
     Dosage: 120 TABLETS/10 DAYS DAILY
  34. PYLERA [Suspect]
     Active Substance: BISMUTH SUBCITRATE POTASSIUM\METRONIDAZOLE\TETRACYCLINE HYDROCHLORIDE
     Dosage: 120 TABLETS/10 DAYS DAILY
     Route: 048
  35. PYLERA [Suspect]
     Active Substance: BISMUTH SUBCITRATE POTASSIUM\METRONIDAZOLE\TETRACYCLINE HYDROCHLORIDE
     Dosage: 120 TABLETS/10 DAYS DAILY
     Route: 048
  36. PYLERA [Suspect]
     Active Substance: BISMUTH SUBCITRATE POTASSIUM\METRONIDAZOLE\TETRACYCLINE HYDROCHLORIDE
     Dosage: 120 TABLETS/10 DAYS DAILY
  37. CALCIUM POLYSTYRENE SULFONATE [Suspect]
     Active Substance: CALCIUM POLYSTYRENE SULFONATE
     Indication: Blood potassium increased
     Dosage: UNK
  38. CALCIUM POLYSTYRENE SULFONATE [Suspect]
     Active Substance: CALCIUM POLYSTYRENE SULFONATE
     Dosage: UNK
     Route: 048
  39. CALCIUM POLYSTYRENE SULFONATE [Suspect]
     Active Substance: CALCIUM POLYSTYRENE SULFONATE
     Dosage: UNK
     Route: 048
  40. CALCIUM POLYSTYRENE SULFONATE [Suspect]
     Active Substance: CALCIUM POLYSTYRENE SULFONATE
     Dosage: UNK
  41. JANUVIA [Concomitant]
     Active Substance: SITAGLIPTIN PHOSPHATE
     Indication: Type 2 diabetes mellitus
     Dosage: UNK, QD; 0-1-0
     Dates: start: 20240502
  42. JANUVIA [Concomitant]
     Active Substance: SITAGLIPTIN PHOSPHATE
     Dosage: UNK, QD; 0-1-0
     Route: 048
     Dates: start: 20240502
  43. JANUVIA [Concomitant]
     Active Substance: SITAGLIPTIN PHOSPHATE
     Dosage: UNK, QD; 0-1-0
     Route: 048
     Dates: start: 20240502
  44. JANUVIA [Concomitant]
     Active Substance: SITAGLIPTIN PHOSPHATE
     Dosage: UNK, QD; 0-1-0
     Dates: start: 20240502
  45. NEBIVOLOL HYDROCHLORIDE [Concomitant]
     Active Substance: NEBIVOLOL HYDROCHLORIDE
     Indication: Hypertension
     Dosage: UNK
  46. NEBIVOLOL HYDROCHLORIDE [Concomitant]
     Active Substance: NEBIVOLOL HYDROCHLORIDE
     Dosage: UNK
     Route: 047
  47. NEBIVOLOL HYDROCHLORIDE [Concomitant]
     Active Substance: NEBIVOLOL HYDROCHLORIDE
     Dosage: UNK
     Route: 047
  48. NEBIVOLOL HYDROCHLORIDE [Concomitant]
     Active Substance: NEBIVOLOL HYDROCHLORIDE
     Dosage: UNK
  49. JARDIANCE [Concomitant]
     Active Substance: EMPAGLIFLOZIN
     Indication: Type 2 diabetes mellitus
     Dosage: UNK, QD; 1-0-0
     Dates: start: 20240502
  50. JARDIANCE [Concomitant]
     Active Substance: EMPAGLIFLOZIN
     Dosage: UNK, QD; 1-0-0
     Route: 048
     Dates: start: 20240502
  51. JARDIANCE [Concomitant]
     Active Substance: EMPAGLIFLOZIN
     Dosage: UNK, QD; 1-0-0
     Route: 048
     Dates: start: 20240502
  52. JARDIANCE [Concomitant]
     Active Substance: EMPAGLIFLOZIN
     Dosage: UNK, QD; 1-0-0
     Dates: start: 20240502
  53. PARAFFIN [Concomitant]
     Active Substance: PARAFFIN
     Dosage: UNK
  54. PARAFFIN [Concomitant]
     Active Substance: PARAFFIN
     Dosage: UNK
     Route: 065
  55. PARAFFIN [Concomitant]
     Active Substance: PARAFFIN
     Dosage: UNK
     Route: 065
  56. PARAFFIN [Concomitant]
     Active Substance: PARAFFIN
     Dosage: UNK

REACTIONS (24)
  - Bronchitis [Recovered/Resolved]
  - Cardiac failure [Recovering/Resolving]
  - Pneumonia [Recovering/Resolving]
  - Renal failure [Recovering/Resolving]
  - Pulmonary oedema [Recovering/Resolving]
  - Cardiac disorder [Recovering/Resolving]
  - Loss of consciousness [Recovered/Resolved]
  - Diabetes mellitus inadequate control [Recovering/Resolving]
  - Anaemia [Recovered/Resolved]
  - Diarrhoea [Recovered/Resolved]
  - Blood potassium increased [Not Recovered/Not Resolved]
  - Hypertension [Recovering/Resolving]
  - Mineral deficiency [Recovered/Resolved]
  - Renal disorder [Recovering/Resolving]
  - Blood glucose increased [Not Recovered/Not Resolved]
  - Illness [Recovering/Resolving]
  - Blood glucose fluctuation [Recovered/Resolved]
  - Dysarthria [Recovering/Resolving]
  - Feeling abnormal [Recovering/Resolving]
  - Hypoglycaemia [Recovering/Resolving]
  - Glycosylated haemoglobin increased [Recovering/Resolving]
  - Dyspepsia [Recovering/Resolving]
  - Dizziness [Unknown]
  - Product storage error [Unknown]

NARRATIVE: CASE EVENT DATE: 20241219
